FAERS Safety Report 8684309 (Version 2)
Quarter: 2012Q4

REPORT INFORMATION
  Report Type: 
  Country: US (occurrence: US)
  Receive Date: 20120726
  Receipt Date: 20120924
  Transmission Date: 20130627
  Serious: Yes (Other)
  Sender: FDA-Public Use
  Company Number: US-PFIZER INC-2012178080

PATIENT
  Age: 42 Year
  Sex: Female

DRUGS (8)
  1. NEURONTIN [Suspect]
     Dosage: UNK
     Route: 048
     Dates: start: 20120316
  2. NEURONTIN [Suspect]
     Dosage: 300 mg, 3x/day (2 Caps PO TID)
     Route: 048
     Dates: start: 20120710
  3. MAXALT [Concomitant]
     Dosage: 10 mg, UNK
     Dates: start: 20120710
  4. HALOPERIDOL [Concomitant]
     Dosage: 1 mg, UNK
     Dates: start: 20120710
  5. PROPRANOLOL HYDROCHLORIDE [Concomitant]
     Dosage: 20 mg, UNK
     Dates: start: 20120710
  6. PRAVACHOL [Concomitant]
     Dosage: 40 mg, UNK
     Dates: start: 20120710
  7. FISH OIL [Concomitant]
     Dosage: 1000 mg, UNK
     Dates: start: 20120710
  8. PROMETHAZINE HYDROCHLORIDE [Concomitant]
     Dosage: 25 mg, UNK
     Dates: start: 20120710

REACTIONS (5)
  - Essential hypertension [Unknown]
  - Hyperlipidaemia [Unknown]
  - Anxiety [Unknown]
  - Depression [Unknown]
  - Migraine [Unknown]
